FAERS Safety Report 8607697-0 (Version None)
Quarter: 2012Q3

REPORT INFORMATION
  Report Type: 
  Country: None (occurrence: None)
  Receive Date: 20120821
  Receipt Date: 20120809
  Transmission Date: 20120928
  Serious: Yes (Other)
  Sender: FDA-Public Use
  Company Number: JP-PFIZER INC-2012202057

PATIENT
  Age: 76 Year
  Sex: Male

DRUGS (1)
  1. CELEBREX [Suspect]
     Dosage: UNK
     Route: 048

REACTIONS (1)
  - CARDIAC OPERATION [None]
